FAERS Safety Report 4978230-X (Version None)
Quarter: 2006Q2

REPORT INFORMATION
  Report Type: 
  Country: None (occurrence: None)
  Receive Date: 20060417
  Receipt Date: 20060404
  Transmission Date: 20061013
  Serious: Yes (Death, Life-Threatening, Hospitalization)
  Sender: FDA-Public Use
  Company Number: HQWYE726710APR06

PATIENT
  Age: 83 Year
  Sex: Male
  Weight: 68.1 kg

DRUGS (1)
  1. ZOSYN [Suspect]
     Indication: OSTEOMYELITIS
     Dosage: 4.5 G 1X PER 8 HR, INTRAVENOUS
     Route: 042
     Dates: start: 20050922, end: 20051008

REACTIONS (8)
  - DRUG TOXICITY [None]
  - HEPATIC FAILURE [None]
  - HEPATITIS [None]
  - MYALGIA [None]
  - NEUTROPENIA [None]
  - RENAL FAILURE [None]
  - SUBDURAL HAEMATOMA [None]
  - THROMBOCYTOPENIA [None]
